FAERS Safety Report 9192559 (Version 2)
Quarter: 2013Q2

REPORT INFORMATION
  Report Type: Spontaneous
  Country: US (occurrence: None)
  Receive Date: 20120703
  Receipt Date: 20130107
  Transmission Date: 20140414
  Serious: No
  Sender: FDA-Public Use
  Company Number: PHEH2012US009290

PATIENT
  Sex: Female

DRUGS (1)
  1. GILENYA (FTY)CAPSULE, 0.5MG [Suspect]
     Indication: MULTIPLE SCLEROSIS
     Route: 048

REACTIONS (6)
  - Gait disturbance [None]
  - Pain in extremity [None]
  - Muscular weakness [None]
  - Multiple sclerosis relapse [None]
  - Asthenia [None]
  - Burning sensation [None]
